FAERS Safety Report 5386058-4 (Version None)
Quarter: 2007Q3

REPORT INFORMATION
  Report Type: 
  Country: None (occurrence: None)
  Receive Date: 20070710
  Receipt Date: 20070628
  Transmission Date: 20080115
  Serious: Yes (Other)
  Sender: FDA-Public Use
  Company Number: 015702

PATIENT
  Age: 56 Year
  Sex: Female

DRUGS (7)
  1. METHOTREXATE [Suspect]
     Indication: BREAST CANCER
     Dosage: 100 MG/M2 DAY Q14 DAYS, 8 CYCLES, INTRAVENOUS
     Route: 042
  2. DOXORUBICIN HCL [Suspect]
     Indication: BREAST CANCER
     Dosage: 40 MG/M2, DAY1 Q14 DAYS, 8 CYCLES, INTRAVENOUS
     Route: 042
  3. FLUOROURACIL [Suspect]
     Indication: BREAST CANCER
     Dosage: SEE IMAGE
     Route: 042
  4. CYCLOPHOSPHAMIDE [Suspect]
     Indication: BREAST CANCER
     Dosage: 100 MG/M2 DAY 1-7 Q14DAYS 8 CYCLES, INTRAVENOUS
     Route: 042
  5. VINCRISTINE [Suspect]
     Indication: BREAST CANCER
     Dosage: 1 MG DAY 1 Q 14DAYS, 8 CYCLES, INTRAVENOUS
     Route: 042
  6. VINCRISTINE [Suspect]
     Indication: BREAST CANCER
     Dosage: 1 MG DAY 1 Q14DAYS 8 CYCLES, INTRAVENOUS
     Route: 042
  7. LEUCOVORIN CALCIUM [Concomitant]

REACTIONS (3)
  - LIP AND/OR ORAL CAVITY CANCER [None]
  - MUCOSAL INFLAMMATION [None]
  - SQUAMOUS CELL CARCINOMA [None]
